FAERS Safety Report 4705649-4 (Version None)
Quarter: 2005Q3

REPORT INFORMATION
  Report Type: 
  Country: None (occurrence: None)
  Receive Date: 20050630
  Receipt Date: 20050617
  Transmission Date: 20060218
  Serious: Yes (Other)
  Sender: FDA-Public Use
  Company Number: HQWYE221803JUN05

PATIENT

DRUGS (2)
  1. EFFEXOR XR [Suspect]
     Dosage: ORAL
     Route: 048
  2. RISPERIDONE [Concomitant]

REACTIONS (1)
  - SYSTEMIC LUPUS ERYTHEMATOSUS [None]
